FAERS Safety Report 9189355 (Version 1)
Quarter: 2013Q1

REPORT INFORMATION
  Report Type: Spontaneous
  Country: BR (occurrence: BR)
  Receive Date: 20130326
  Receipt Date: 20130326
  Transmission Date: 20140127
  Serious: Yes (Other)
  Sender: FDA-Public Use
  Company Number: PHHY2012BR073185

PATIENT
  Age: 7 Year
  Sex: Male

DRUGS (2)
  1. RITALINA [Suspect]
     Indication: ATTENTION DEFICIT/HYPERACTIVITY DISORDER
     Dosage: 2 DF, DAILY
     Route: 048
     Dates: end: 201301
  2. HIXIZINE [Concomitant]
     Dosage: UNK UKN, UNK

REACTIONS (7)
  - Rhinitis allergic [Recovering/Resolving]
  - Sinusitis [Recovered/Resolved]
  - Epistaxis [Recovered/Resolved]
  - Nasal discomfort [Recovered/Resolved]
  - Aggression [Recovering/Resolving]
  - Agitation [Recovering/Resolving]
  - Middle insomnia [Unknown]
